FAERS Safety Report 14635667 (Version 6)
Quarter: 2022Q2

REPORT INFORMATION
  Report Type: Report from Study
  Country: DE (occurrence: DE)
  Receive Date: 20180314
  Receipt Date: 20220413
  Transmission Date: 20220720
  Serious: Yes (Hospitalization, Other)
  Sender: FDA-Public Use
  Company Number: DE-UCBSA-2017031450

PATIENT
  Sex: Female

DRUGS (15)
  1. METHOTREXATE SODIUM [Suspect]
     Active Substance: METHOTREXATE SODIUM
     Indication: Rheumatoid arthritis
     Dosage: 5 MG, WEEKLY (QW)
     Dates: start: 201701, end: 201911
  2. UNSPECIFIED INGREDIENT [Suspect]
     Active Substance: UNSPECIFIED INGREDIENT
     Dosage: NO DOSE GIVEN
  3. HULIO [Suspect]
     Active Substance: ADALIMUMAB-FKJP
     Dosage: 40 MG, CYCLIC, EVERY 2 WEEKS(QOW)
     Route: 058
     Dates: start: 20210531, end: 20210628
  4. CERTOLIZUMAB PEGOL [Suspect]
     Active Substance: CERTOLIZUMAB PEGOL
     Indication: Rheumatoid arthritis
     Dosage: 400 MG, UNK
     Route: 058
     Dates: start: 20170109, end: 2017
  5. CERTOLIZUMAB PEGOL [Suspect]
     Active Substance: CERTOLIZUMAB PEGOL
     Dosage: 200 MG, CYCLIC (EVERY 2 WEEKS)
     Route: 058
     Dates: start: 2017, end: 20170320
  6. CERTOLIZUMAB PEGOL [Suspect]
     Active Substance: CERTOLIZUMAB PEGOL
     Dosage: 200 MG, CYCLIC (EVERY 2 WEEKS)
     Route: 058
     Dates: start: 201707, end: 20191029
  7. CERTOLIZUMAB PEGOL [Suspect]
     Active Substance: CERTOLIZUMAB PEGOL
     Dosage: 200 MG, CYCLIC (EVERY TWO WEEKS)
     Dates: start: 20200101, end: 20201129
  8. CERTOLIZUMAB PEGOL [Suspect]
     Active Substance: CERTOLIZUMAB PEGOL
     Dosage: 200 MG, CYCLIC (EVERY TWO WEEKS)
     Dates: start: 202012, end: 20210416
  9. PANTOPRAZOLE SODIUM [Concomitant]
     Active Substance: PANTOPRAZOLE SODIUM
     Dosage: 40 MG
  10. NALOXONE HYDROCHLORIDE\TILIDINE HYDROCHLORIDE [Concomitant]
     Active Substance: NALOXONE HYDROCHLORIDE\TILIDINE HYDROCHLORIDE
     Dosage: 50/4 MG
  11. CHOLECALCIFEROL [Concomitant]
     Active Substance: CHOLECALCIFEROL
     Dosage: 1000 IU
  12. PREDNISOLONE [Concomitant]
     Active Substance: PREDNISOLONE
     Dosage: UNK
  13. CYCLOSPORINE [Concomitant]
     Active Substance: CYCLOSPORINE
     Dosage: UNK
     Dates: start: 2009
  14. FOLIC ACID [Concomitant]
     Active Substance: FOLIC ACID
     Dosage: 5 MG
  15. NALOXONE HYDROCHLORIDE\TILIDINE HYDROCHLORIDE [Concomitant]
     Active Substance: NALOXONE HYDROCHLORIDE\TILIDINE HYDROCHLORIDE
     Dosage: 50/4 MG

REACTIONS (20)
  - Drug-induced liver injury [Not Recovered/Not Resolved]
  - Leukopenia [Not Recovered/Not Resolved]
  - Plantar fascial fibromatosis [Unknown]
  - Rheumatoid arthritis [Recovered/Resolved]
  - Cartilage injury [Recovered/Resolved]
  - Morton^s neuralgia [Recovered/Resolved]
  - Foot deformity [Recovered/Resolved]
  - Pseudarthrosis [Unknown]
  - Acquired claw toe [Recovered/Resolved]
  - Hepatitis E [Recovered/Resolved]
  - Folate deficiency [Unknown]
  - Gastrointestinal infection [Recovered/Resolved]
  - Bronchitis [Recovered/Resolved]
  - Nasopharyngitis [Unknown]
  - Haematuria [Unknown]
  - Oropharyngeal pain [Not Recovered/Not Resolved]
  - Gastroenteritis [Recovered/Resolved]
  - Joint swelling [Not Recovered/Not Resolved]
  - Influenza like illness [Recovered/Resolved]
  - Fall [Not Recovered/Not Resolved]

NARRATIVE: CASE EVENT DATE: 20170315
